FAERS Safety Report 7556594-0 (Version None)
Quarter: 2011Q2

REPORT INFORMATION
  Report Type: 
  Country: None (occurrence: None)
  Receive Date: 20110616
  Receipt Date: 20110616
  Transmission Date: 20111010
  Serious: Yes (Other)
  Sender: FDA-Public Use
  Company Number: None

PATIENT
  Age: 76 Year
  Sex: Female
  Weight: 56.6996 kg

DRUGS (1)
  1. LATANOPROST [Suspect]
     Indication: GLAUCOMA
     Dosage: 1 DROP DAILY OPTHALMIC
     Route: 047
     Dates: start: 20110401, end: 20110414

REACTIONS (3)
  - PRODUCT SUBSTITUTION ISSUE [None]
  - EYE INFECTION [None]
  - PRODUCT CONTAMINATION MICROBIAL [None]
